FAERS Safety Report 13942098 (Version 1)
Quarter: 2017Q3

REPORT INFORMATION
  Report Type: Spontaneous
  Country: US (occurrence: US)
  Receive Date: 20170906
  Receipt Date: 20170906
  Transmission Date: 20171127
  Serious: Yes (Death, Other)
  Sender: FDA-Public Use
  Company Number: US-TEVA-804142USA

PATIENT
  Age: 47 Year
  Sex: Female
  Weight: 55 kg

DRUGS (5)
  1. AVASTIN [Suspect]
     Active Substance: BEVACIZUMAB
     Route: 065
  2. DESAMETASONE [Concomitant]
     Active Substance: DEXAMETHASONE
  3. PACLITAXEL. [Suspect]
     Active Substance: PACLITAXEL
     Route: 065
     Dates: start: 20161116, end: 20170223
  4. XGEVA [Suspect]
     Active Substance: DENOSUMAB
     Route: 065
  5. CIPROFLOXACINA [Concomitant]
     Active Substance: CIPROFLOXACIN

REACTIONS (5)
  - Thrombocytopenic purpura [Unknown]
  - Abdominal pain [Fatal]
  - Platelet count decreased [Fatal]
  - Confusional state [Fatal]
  - Haemolytic anaemia [Fatal]

NARRATIVE: CASE EVENT DATE: 20170329
